FAERS Safety Report 4797345-2 (Version None)
Quarter: 2005Q4

REPORT INFORMATION
  Report Type: 
  Country: None (occurrence: None)
  Receive Date: 20051011
  Receipt Date: 20051011
  Transmission Date: 20060501
  Serious: Yes (Life-Threatening, Disabling)
  Sender: FDA-Public Use
  Company Number: None

PATIENT
  Sex: Male
  Weight: 63.5036 kg

DRUGS (10)
  1. ZOCOR [Suspect]
     Indication: BLOOD CHOLESTEROL INCREASED
     Dosage: 40 MG ONCE DAILY PO
     Route: 048
     Dates: start: 20000824, end: 20050601
  2. ZOCOR [Suspect]
     Dosage: 20 MG ONCE DAILY PO
     Route: 048
     Dates: start: 20050601, end: 20051007
  3. COZAAR [Concomitant]
  4. SOTOLOL [Concomitant]
  5. ISRADIPINE [Concomitant]
  6. LISINOPRIL [Concomitant]
  7. CITOLOPRAM [Concomitant]
  8. DIGOXIN [Concomitant]
  9. COUMADIN [Concomitant]
  10. POTASSIUM [Concomitant]

REACTIONS (5)
  - CHROMATURIA [None]
  - DIFFICULTY IN WALKING [None]
  - FALL [None]
  - FLANK PAIN [None]
  - RHABDOMYOLYSIS [None]
